FAERS Safety Report 24986144 (Version 1)
Quarter: 2025Q1

REPORT INFORMATION
  Report Type: Spontaneous
  Country: JO (occurrence: JO)
  Receive Date: 20250219
  Receipt Date: 20250219
  Transmission Date: 20250409
  Serious: Yes (Death, Other)
  Sender: HIKMA
  Company Number: JO-HIKMA PHARMACEUTICALS-JO-H14001-25-01483

PATIENT
  Sex: Female

DRUGS (4)
  1. IFOSFAMIDE [Suspect]
     Active Substance: IFOSFAMIDE
     Indication: Hodgkin^s disease refractory
     Route: 042
     Dates: start: 20241126, end: 20241127
  2. CARBOPLATIN [Concomitant]
     Active Substance: CARBOPLATIN
     Indication: Product used for unknown indication
     Route: 065
  3. ETOPOSIDE [Concomitant]
     Active Substance: ETOPOSIDE
     Indication: Product used for unknown indication
     Route: 065
  4. MESNA [Concomitant]
     Active Substance: MESNA
     Indication: Product used for unknown indication
     Route: 065

REACTIONS (6)
  - Off label use [Unknown]
  - Coma [Recovered/Resolved]
  - Hallucination [Unknown]
  - Aggression [Unknown]
  - Seizure [Unknown]
  - Death [Fatal]

NARRATIVE: CASE EVENT DATE: 20241126
